FAERS Safety Report 10084313 (Version 1)
Quarter: 2014Q2

REPORT INFORMATION
  Report Type: Spontaneous
  Country: US (occurrence: US)
  Receive Date: 20140417
  Receipt Date: 20140417
  Transmission Date: 20141212
  Serious: Yes (Other)
  Sender: FDA-Public Use
  Company Number: US-BAYER-2014-057045

PATIENT
  Age: 65 Year
  Sex: Male

DRUGS (3)
  1. VARDENAFIL (EXTENDED RELEASE) [Suspect]
     Indication: ERECTILE DYSFUNCTION
     Dosage: 20 MG, PRN
  2. TADALAFIL [Concomitant]
     Dosage: 5 MG, QD EVERYMORNING
  3. VERAPAMIL [Concomitant]
     Indication: HYPERTROPHIC CARDIOMYOPATHY

REACTIONS (1)
  - Presyncope [None]
